FAERS Safety Report 25996081 (Version 1)
Quarter: 2025Q4

REPORT INFORMATION
  Report Type: Spontaneous
  Country: JP (occurrence: JP)
  Receive Date: 20251104
  Receipt Date: 20251104
  Transmission Date: 20260117
  Serious: Yes (Other)
  Sender: ELI LILLY AND COMPANY
  Company Number: JP-NShinyaku-EVA202514460ZZLILLY

PATIENT
  Age: 65 Year
  Sex: Female
  Weight: 40 kg

DRUGS (19)
  1. TADALAFIL [Suspect]
     Active Substance: TADALAFIL
     Indication: Pulmonary arterial hypertension
     Route: 048
  2. UPTRAVI [Concomitant]
     Active Substance: SELEXIPAG
  3. UPTRAVI [Concomitant]
     Active Substance: SELEXIPAG
     Dosage: GRADUALLY INCREASED
  4. PREDNISOLONE [Concomitant]
     Active Substance: PREDNISOLONE
  5. PREDNISOLONE [Concomitant]
     Active Substance: PREDNISOLONE
  6. PREDNISOLONE [Concomitant]
     Active Substance: PREDNISOLONE
  7. CLARITHROMYCIN [Concomitant]
     Active Substance: CLARITHROMYCIN
  8. MONTELUKAST SODIUM [Concomitant]
     Active Substance: MONTELUKAST SODIUM
     Dosage: UNKNOWN
  9. PPI [OMEPRAZOLE SODIUM] [Concomitant]
     Dosage: UNKNOWN
  10. LAXATIVE FOR WOMEN [Concomitant]
     Active Substance: BISACODYL
     Dosage: UNKNOWN
  11. ALLOPURINOL [Concomitant]
     Active Substance: ALLOPURINOL
     Dosage: UNKNOWN
  12. BILASTINE [Concomitant]
     Active Substance: BILASTINE
     Dosage: UNKNOWN
  13. HYDROCHLOROTHIAZIDE [Concomitant]
     Active Substance: HYDROCHLOROTHIAZIDE
     Dosage: UNKNOWN
  14. DOBUTAMINE HYDROCHLORIDE [Concomitant]
     Active Substance: DOBUTAMINE HYDROCHLORIDE
     Dosage: 5 GAMMA
  15. DOBUTAMINE HYDROCHLORIDE [Concomitant]
     Active Substance: DOBUTAMINE HYDROCHLORIDE
     Dosage: 2 GAMMA
  16. HEPARIN [Concomitant]
     Active Substance: HEPARIN SODIUM
     Dosage: UNKNOWN
  17. MYCOPHENOLATE MOFETIL [Concomitant]
     Active Substance: MYCOPHENOLATE MOFETIL
     Dosage: UNKNOWN
  18. WARFARIN [Concomitant]
     Active Substance: WARFARIN
     Dosage: UNKNOWN
  19. OPSUMIT [Concomitant]
     Active Substance: MACITENTAN
     Dosage: UNKNOWN

REACTIONS (3)
  - Dieulafoy^s vascular malformation [Unknown]
  - Ulcer haemorrhage [Unknown]
  - Asthenia [Unknown]
